FAERS Safety Report 9315969 (Version 1)
Quarter: 2013Q2

REPORT INFORMATION
  Report Type: Spontaneous
  Country: DE (occurrence: DE)
  Receive Date: 20130530
  Receipt Date: 20130530
  Transmission Date: 20140414
  Serious: Yes (Hospitalization)
  Sender: FDA-Public Use
  Company Number: DE-BIOGENIDEC-2013BI047291

PATIENT
  Age: 48 Year
  Sex: Female
  Weight: 81 kg

DRUGS (1)
  1. AVONEX [Suspect]
     Indication: MULTIPLE SCLEROSIS
     Route: 030
     Dates: start: 20100113

REACTIONS (7)
  - Gastritis [Recovered/Resolved with Sequelae]
  - Abdominal pain [Recovered/Resolved with Sequelae]
  - Abdominal pain upper [Recovered/Resolved with Sequelae]
  - Headache [Recovered/Resolved]
  - Pain in extremity [Recovered/Resolved]
  - Sciatic nerve neuropathy [Unknown]
  - Hypothyroidism [Unknown]
